FAERS Safety Report 5815913-3 (Version None)
Quarter: 2008Q3

REPORT INFORMATION
  Report Type: 
  Country: None (occurrence: None)
  Receive Date: 20080721
  Receipt Date: 20080710
  Transmission Date: 20090109
  Serious: Yes (Other)
  Sender: FDA-Public Use
  Company Number: EE-ROCHE-575411

PATIENT
  Sex: Female
  Weight: 58 kg

DRUGS (18)
  1. CELLCEPT [Suspect]
     Dosage: GIVEN 500 MG X 2.
     Route: 065
     Dates: start: 19980101
  2. CELLCEPT [Suspect]
     Dosage: GIVEN 750 MG X 2.
     Route: 065
     Dates: end: 20080704
  3. NEORECORMON [Suspect]
     Dosage: WEEKLY, PFS (PREFILLED SYRINGE).
     Route: 058
     Dates: start: 20080425, end: 20080610
  4. NEORECORMON [Suspect]
     Dosage: WEEKLY, PFS (PREFILLED SYRINGE).
     Route: 058
     Dates: start: 20040810, end: 20041208
  5. NEORECORMON [Suspect]
     Dosage: WEEKLY, PFS (PREFILLED SYRINGE).
     Route: 058
     Dates: start: 20041209, end: 20061019
  6. NEORECORMON [Suspect]
     Dosage: WEEKLY, PFS (PREFILLED SYRINGE).
     Route: 058
     Dates: start: 20061020, end: 20071016
  7. NEORECORMON [Suspect]
     Dosage: WEEKLY, PFS (PREFILLED SYRINGE).
     Route: 058
     Dates: start: 20061017, end: 20080424
  8. ARANESP [Suspect]
     Dosage: GIVEN WEEKLY, PFS (PREFILLED SYRINGE).
     Route: 058
     Dates: start: 20080611
  9. MESAR [Suspect]
     Indication: DRUG USE FOR UNKNOWN INDICATION
     Dosage: GIVEN 20 MG X 2.
     Route: 065
     Dates: start: 20080301
  10. NEORAL [Concomitant]
     Dosage: GIVEN 50 PLUS 25 MG. DRUG NAME: NEORALI.
     Dates: start: 19980101
  11. OMEPRAZOLE [Concomitant]
     Dosage: GIVEN 20 MG X 1. DRUG NAME: OMEPRAZOLI.
  12. LERCAPIN [Concomitant]
     Dosage: GIVEN 10 MG X 1. DRUG NAME: LERCAPINI.
  13. HUMALOG [Concomitant]
     Dosage: GIVEN 2 PLUS 4 PLUS 4 IU.
  14. LEVEMIR [Concomitant]
     Dosage: GIVEN 9 PLUS 12 IU.
  15. FERRO SANOL [Concomitant]
     Dosage: GIVEN 100 MG X 2. DRUG NAME: FERROSAN.
     Dates: start: 20010814, end: 20020419
  16. FERRO SANOL [Concomitant]
     Dosage: GIVEN 100 MG X 3. DRUG NAME: FERROSAN.
     Dates: start: 20020420, end: 20040421
  17. FERRO SANOL [Concomitant]
     Dosage: GIVEN 100 MG X 1. DRUG NAME: FERROSAN.
     Dates: start: 20040422, end: 20071016
  18. IRON [Concomitant]
     Route: 042
     Dates: start: 20071017, end: 20080430

REACTIONS (1)
  - DRUG EFFECT DECREASED [None]
